FAERS Safety Report 7412408-0 (Version None)
Quarter: 2011Q2

REPORT INFORMATION
  Report Type: 
  Country: None (occurrence: None)
  Receive Date: 20110413
  Receipt Date: 20110329
  Transmission Date: 20111010
  Serious: Yes (Disabling)
  Sender: FDA-Public Use
  Company Number: PHHY2011JP14220

PATIENT
  Sex: Male

DRUGS (1)
  1. LAMISIL [Suspect]
     Indication: TINEA VERSICOLOUR
     Dosage: UNK
     Route: 048
     Dates: start: 20101029, end: 20101111

REACTIONS (4)
  - OEDEMA PERIPHERAL [None]
  - ANTINUCLEAR ANTIBODY POSITIVE [None]
  - PERIPHERAL COLDNESS [None]
  - FACE OEDEMA [None]
